FAERS Safety Report 5582928-2 (Version None)
Quarter: 2007Q4

REPORT INFORMATION
  Report Type: 
  Country: None (occurrence: None)
  Receive Date: 20071231
  Receipt Date: 20071213
  Transmission Date: 20080405
  Serious: Yes (Hospitalization)
  Sender: FDA-Public Use
  Company Number: PPC200700006

PATIENT
  Age: 53 Year
  Sex: Male
  Weight: 66 kg

DRUGS (14)
  1. STERILE VANCOMYCIN HYDRODCHLORIDE, USP (VANCOMYCIN HYDROCHLORIDE) [Suspect]
     Indication: ARTERIAL GRAFT
     Dosage: SEE IMAGE
     Route: 042
     Dates: start: 20071017, end: 20071018
  2. STERILE VANCOMYCIN HYDRODCHLORIDE, USP (VANCOMYCIN HYDROCHLORIDE) [Suspect]
     Indication: GRAFT INFECTION
     Dosage: SEE IMAGE
     Route: 042
     Dates: start: 20071017, end: 20071018
  3. STERILE VANCOMYCIN HYDRODCHLORIDE, USP (VANCOMYCIN HYDROCHLORIDE) [Suspect]
     Indication: ARTERIAL GRAFT
     Dosage: SEE IMAGE
     Route: 042
     Dates: start: 20071019, end: 20071021
  4. STERILE VANCOMYCIN HYDRODCHLORIDE, USP (VANCOMYCIN HYDROCHLORIDE) [Suspect]
     Indication: GRAFT INFECTION
     Dosage: SEE IMAGE
     Route: 042
     Dates: start: 20071019, end: 20071021
  5. STERILE VANCOMYCIN HYDRODCHLORIDE, USP (VANCOMYCIN HYDROCHLORIDE) [Suspect]
     Indication: ARTERIAL GRAFT
     Dosage: SEE IMAGE
     Route: 042
     Dates: start: 20071022, end: 20071023
  6. STERILE VANCOMYCIN HYDRODCHLORIDE, USP (VANCOMYCIN HYDROCHLORIDE) [Suspect]
     Indication: GRAFT INFECTION
     Dosage: SEE IMAGE
     Route: 042
     Dates: start: 20071022, end: 20071023
  7. STERILE VANCOMYCIN HYDRODCHLORIDE, USP (VANCOMYCIN HYDROCHLORIDE) [Suspect]
     Indication: ARTERIAL GRAFT
     Dosage: SEE IMAGE
     Route: 042
     Dates: start: 20071023, end: 20071102
  8. STERILE VANCOMYCIN HYDRODCHLORIDE, USP (VANCOMYCIN HYDROCHLORIDE) [Suspect]
     Indication: GRAFT INFECTION
     Dosage: SEE IMAGE
     Route: 042
     Dates: start: 20071023, end: 20071102
  9. RIFAMPICIN [Suspect]
     Indication: ARTERIAL GRAFT
     Dosage: 600 MG (300 MG, 2 IN 1 D), ORAL
     Route: 048
     Dates: start: 20071023, end: 20071102
  10. RIFAMPICIN [Suspect]
     Indication: GRAFT INFECTION
     Dosage: 600 MG (300 MG, 2 IN 1 D), ORAL
     Route: 048
     Dates: start: 20071023, end: 20071102
  11. RAMIPRIL [Suspect]
     Indication: BLOOD PRESSURE
  12. ASPIRIN [Concomitant]
  13. GLYBURIDE [Concomitant]
  14. METFORMIN HCL [Concomitant]

REACTIONS (5)
  - BLOOD CREATININE INCREASED [None]
  - BLOOD PRESSURE INCREASED [None]
  - DRUG TOXICITY [None]
  - HYPERKALAEMIA [None]
  - OLIGURIA [None]
